FAERS Safety Report 7524515-2 (Version None)
Quarter: 2011Q2

REPORT INFORMATION
  Report Type: 
  Country: None (occurrence: None)
  Receive Date: 20110606
  Receipt Date: 20110517
  Transmission Date: 20111010
  Serious: Yes (Hospitalization, Other)
  Sender: FDA-Public Use
  Company Number: US-BAYER-201025558NA

PATIENT
  Age: 25 Year
  Sex: Female
  Weight: 54.422 kg

DRUGS (5)
  1. YASMIN [Suspect]
     Indication: UTERINE LEIOMYOMA
     Dosage: UNK UNK, QD
     Route: 048
     Dates: start: 20060701
  2. ALBUTEROL SULFATE AUTOHALER [Concomitant]
  3. YASMIN [Suspect]
     Dosage: UNK, QD
     Route: 048
     Dates: start: 20060201
  4. OVCON-35 [Concomitant]
     Dosage: UNK
     Dates: start: 20061017
  5. MOTRIN [Concomitant]

REACTIONS (3)
  - ABDOMINAL PAIN UPPER [None]
  - CHOLECYSTITIS ACUTE [None]
  - VOMITING [None]
